FAERS Safety Report 4979731-0 (Version None)
Quarter: 2006Q1

REPORT INFORMATION
  Report Type: 
  Country: None (occurrence: None)
  Receive Date: 20060216
  Receipt Date: 20051228
  Transmission Date: 20060701
  Serious: No
  Sender: FDA-Public Use
  Company Number: TPA2005A01405

PATIENT
  Sex: Female
  Weight: 58.9676 kg

DRUGS (12)
  1. ROZEREM [Suspect]
     Indication: SLEEP DISORDER
     Dosage: 4-8MG 1/2 OR 1 TAB, QHS, PER ORAL
     Route: 048
     Dates: start: 20050928, end: 20051021
  2. MIRCETTE [Suspect]
     Indication: CONTRACEPTION
  3. ZOLOFT (SERTRALINE HYDROCHLORIDE) (12.5 MILLIGRAM) [Concomitant]
  4. BUSPAR (BUSPIRONE HYDROCHLORIDE) (10 MILLIGRAM) [Concomitant]
  5. ORGANIC LITHIUM (LITHIUM) [Concomitant]
  6. FLEXERIL (CYCLOENZAPRINE HYDROCHLORIDE) (2.5 MILLIGRAM) [Concomitant]
  7. MULTIVITAMIN [Concomitant]
  8. VITAMIN B (VITAMIN B) [Concomitant]
  9. IRON (IRON) [Concomitant]
  10. MAGNESIUM (MAGNESIUM) [Concomitant]
  11. ESSENTIAL FATTY ACIDS (ALL OTHER THERAPEUTIC PRODUCTS) [Concomitant]
  12. 5-HTP (ALL OTHER THERAPEUTIC PRODUCTS) (100 MILLIGRAM) [Concomitant]

REACTIONS (5)
  - CONDITION AGGRAVATED [None]
  - METRORRHAGIA [None]
  - MUSCLE SPASMS [None]
  - PAIN IN JAW [None]
  - UNDERDOSE [None]
